FAERS Safety Report 20657396 (Version 2)
Quarter: 2022Q2

REPORT INFORMATION
  Report Type: Spontaneous
  Country: US (occurrence: US)
  Receive Date: 20220331
  Receipt Date: 20220428
  Transmission Date: 20220721
  Serious: Yes (Other)
  Sender: FDA-Public Use
  Company Number: US-LUPIN PHARMACEUTICALS INC.-2022-04361

PATIENT

DRUGS (1)
  1. DESVENLAFAXINE SUCCINATE [Suspect]
     Active Substance: DESVENLAFAXINE SUCCINATE
     Indication: Product used for unknown indication
     Dosage: UNK
     Route: 065

REACTIONS (4)
  - Suicidal ideation [Unknown]
  - Depression [Unknown]
  - Drug ineffective [Unknown]
  - Product substitution issue [Unknown]
